FAERS Safety Report 5597021-2 (Version None)
Quarter: 2008Q1

REPORT INFORMATION
  Report Type: 
  Country: None (occurrence: None)
  Receive Date: 20080121
  Receipt Date: 20080114
  Transmission Date: 20080703
  Serious: Yes (Other)
  Sender: FDA-Public Use
  Company Number: US-BAYER-200714645NA

PATIENT
  Age: 55 Year
  Sex: Female
  Weight: 52 kg

DRUGS (3)
  1. AVELOX [Suspect]
     Indication: PNEUMONIA
     Dosage: TOTAL DAILY DOSE: 400 MG  UNIT DOSE: 400 MG
     Route: 048
     Dates: start: 20070621, end: 20070701
  2. AVELOX [Suspect]
     Dosage: TOTAL DAILY DOSE: 400 MG  UNIT DOSE: 400 MG
     Route: 048
     Dates: start: 20070904, end: 20070911
  3. DOXYCYCLINE [Concomitant]
     Dosage: TOTAL DAILY DOSE: 200 MG

REACTIONS (13)
  - ABNORMAL BEHAVIOUR [None]
  - AFFECT LABILITY [None]
  - BLINDNESS [None]
  - BLOOD PRESSURE INCREASED [None]
  - CEREBRAL DISORDER [None]
  - DEAFNESS [None]
  - DISSOCIATION [None]
  - DRUG TOXICITY [None]
  - HYPOAESTHESIA [None]
  - NERVOUS SYSTEM DISORDER [None]
  - PERSONALITY CHANGE [None]
  - PHOTOSENSITIVITY REACTION [None]
  - TENDON PAIN [None]
